FAERS Safety Report 5560943-2 (Version None)
Quarter: 2007Q4

REPORT INFORMATION
  Report Type: 
  Country: None (occurrence: None)
  Receive Date: 20071215
  Receipt Date: 20071129
  Transmission Date: 20080405
  Serious: No
  Sender: FDA-Public Use
  Company Number: US-ABBOTT-07P-163-0427261-00

PATIENT
  Sex: Male
  Weight: 109.09 kg

DRUGS (18)
  1. HUMIRA [Suspect]
     Indication: RHEUMATOID ARTHRITIS
     Dosage: PFS
     Route: 058
     Dates: start: 20040101, end: 20050101
  2. HUMIRA [Suspect]
     Indication: OSTEOARTHRITIS
     Dosage: PEN
     Route: 058
     Dates: start: 20070301
  3. ACETYLSALICYLIC ACID SRT [Concomitant]
     Indication: DRUG USE FOR UNKNOWN INDICATION
     Route: 048
  4. ISOSORBIDE DINITRATE [Concomitant]
     Indication: HYPERTENSION
     Route: 048
  5. ATORVASTATIN CALCIUM [Concomitant]
     Indication: LIPIDS INCREASED
     Route: 048
  6. METOPROLOL [Concomitant]
     Indication: CARDIAC DISORDER
     Route: 048
  7. AMLODIPINE [Concomitant]
     Indication: HYPERTENSION
     Route: 048
  8. CLOPIDOGREL [Concomitant]
     Indication: CARDIAC DISORDER
     Route: 048
  9. METHOTREXATE [Concomitant]
     Indication: ARTHRITIS
     Route: 048
  10. LEVOTHYROXINE SODIUM [Concomitant]
     Indication: HYPOTHYROIDISM
     Route: 048
  11. JANUVIA [Concomitant]
     Indication: DIABETES MELLITUS
     Route: 048
  12. CELECOXIB [Concomitant]
     Indication: ARTHRALGIA
     Route: 048
  13. FUROSEMIDE [Concomitant]
     Indication: FLUID RETENTION
     Route: 048
  14. TRAMADOL HCL [Concomitant]
     Indication: PAIN
     Route: 048
  15. FOLIC ACID [Concomitant]
     Indication: VITAMIN SUPPLEMENTATION
     Route: 048
  16. CLONAZEPAM [Concomitant]
     Indication: TREMOR
     Route: 048
  17. CLONAZEPAM [Concomitant]
     Indication: ANXIETY
  18. OMEPRAZOLE [Concomitant]
     Indication: GASTROOESOPHAGEAL REFLUX DISEASE
     Route: 048

REACTIONS (2)
  - DRUG INEFFECTIVE [None]
  - UNDERDOSE [None]
